FAERS Safety Report 12941400 (Version 1)
Quarter: 2016Q4

REPORT INFORMATION
  Report Type: Spontaneous
  Country: US (occurrence: US)
  Receive Date: 20161115
  Receipt Date: 20161115
  Transmission Date: 20170207
  Serious: Yes (Hospitalization)
  Sender: FDA-Public Use
  Company Number: None

PATIENT
  Age: 56 Year
  Sex: Male
  Weight: 114.6 kg

DRUGS (9)
  1. APAP [Concomitant]
     Active Substance: ACETAMINOPHEN
  2. MELATONIN [Concomitant]
     Active Substance: MELATONIN
  3. MVI [Concomitant]
     Active Substance: VITAMINS
  4. DAPTOMYCIN. [Suspect]
     Active Substance: DAPTOMYCIN
     Indication: INFECTION
     Route: 042
  5. RESTORIL [Concomitant]
     Active Substance: TEMAZEPAM
  6. VALIUM [Concomitant]
     Active Substance: DIAZEPAM
  7. METFORMIN [Concomitant]
     Active Substance: METFORMIN HYDROCHLORIDE
  8. PRAVACHOL [Concomitant]
     Active Substance: PRAVASTATIN SODIUM
  9. OXYCODONE [Concomitant]
     Active Substance: OXYCODONE

REACTIONS (6)
  - Eosinophilic pneumonia [None]
  - Dyspnoea [None]
  - Sepsis [None]
  - Chills [None]
  - Pneumonia [None]
  - Pyrexia [None]

NARRATIVE: CASE EVENT DATE: 20150815
